FAERS Safety Report 19107629 (Version 1)
Quarter: 2021Q2

REPORT INFORMATION
  Report Type: Spontaneous
  Country: US (occurrence: US)
  Receive Date: 20210408
  Receipt Date: 20210408
  Transmission Date: 20210717
  Serious: Yes (Other)
  Sender: FDA-Public Use
  Company Number: None

PATIENT
  Age: 73 Year
  Sex: Female
  Weight: 41.4 kg

DRUGS (2)
  1. TRABECTA [Concomitant]
     Dates: start: 20201009, end: 20210320
  2. TABRECTA [Suspect]
     Active Substance: CAPMATINIB
     Indication: LUNG CANCER METASTATIC
     Route: 048

REACTIONS (5)
  - Joint swelling [None]
  - Back pain [None]
  - Hepatic enzyme increased [None]
  - Peripheral swelling [None]
  - Thrombosis [None]
